FAERS Safety Report 4592793-8 (Version None)
Quarter: 2005Q1

REPORT INFORMATION
  Report Type: 
  Country: None (occurrence: None)
  Receive Date: 20050228
  Receipt Date: 20050217
  Transmission Date: 20050727
  Serious: Yes (Congenital Anomaly)
  Sender: FDA-Public Use
  Company Number: CA-JNJFOC-20050205338

PATIENT
  Sex: Female

DRUGS (7)
  1. TOPAMAX [Suspect]
  2. TOPAMAX [Suspect]
  3. TOPAMAX [Suspect]
  4. FOLIC ACID [Concomitant]
     Route: 064
  5. MULTI-VITAMINS [Concomitant]
     Route: 064
  6. MULTI-VITAMINS [Concomitant]
     Route: 064
  7. MULTI-VITAMINS [Concomitant]
     Route: 064

REACTIONS (1)
  - HEMIVERTEBRA [None]
